FAERS Safety Report 21296314 (Version 1)
Quarter: 2022Q3

REPORT INFORMATION
  Report Type: Spontaneous
  Country: CA (occurrence: CA)
  Receive Date: 20220906
  Receipt Date: 20220906
  Transmission Date: 20221027
  Serious: Yes (Hospitalization, Other)
  Sender: FDA-Public Use
  Company Number: None

PATIENT
  Age: 63 Year
  Sex: Male

DRUGS (7)
  1. PREDNISOLONE [Suspect]
     Active Substance: PREDNISOLONE
     Indication: COVID-19
     Dosage: 50 MILLIGRAM, PER DAY, HIGH DOSE
     Route: 048
  2. PREDNISOLONE [Suspect]
     Active Substance: PREDNISOLONE
     Dosage: 30 MILLIGRAM, PER DAY, HIGH DOSE
     Route: 048
  3. PREDNISOLONE [Suspect]
     Active Substance: PREDNISOLONE
     Dosage: UNK, SUBSEQUENTLY TAPERED
     Route: 048
  4. METHYLPREDNISOLONE [Suspect]
     Active Substance: METHYLPREDNISOLONE
     Indication: COVID-19
     Dosage: 240 MILLIGRAM, PER DAY
     Route: 042
  5. METHYLPREDNISOLONE [Suspect]
     Active Substance: METHYLPREDNISOLONE
     Dosage: 80 MILLIGRAM, PER DAY
     Route: 042
  6. CEFTRIAXONE [Suspect]
     Active Substance: CEFTRIAXONE
     Indication: COVID-19
     Dosage: UNK
     Route: 065
  7. TOCILIZUMAB [Suspect]
     Active Substance: TOCILIZUMAB
     Indication: COVID-19
     Dosage: UNK
     Route: 065

REACTIONS (16)
  - Pleural effusion [Unknown]
  - Deep vein thrombosis [Unknown]
  - Candida endophthalmitis [Recovered/Resolved]
  - Mycotic endophthalmitis [Recovered/Resolved]
  - Candida infection [Recovered/Resolved]
  - Fungal oesophagitis [Recovered/Resolved]
  - Empyema [Unknown]
  - Staphylococcal sepsis [Unknown]
  - Staphylococcal infection [Unknown]
  - Urinary tract infection [Unknown]
  - Fungal infection [Unknown]
  - Pseudomonas infection [Unknown]
  - Pseudomonal bacteraemia [Unknown]
  - Retinitis [Recovered/Resolved]
  - Vitritis infective [Recovered/Resolved]
  - Off label use [Unknown]
